FAERS Safety Report 17747323 (Version 1)
Quarter: 2020Q2

REPORT INFORMATION
  Report Type: Spontaneous
  Country: US (occurrence: US)
  Receive Date: 20200505
  Receipt Date: 20200505
  Transmission Date: 20200714
  Serious: Yes (Hospitalization, Other)
  Sender: FDA-Public Use
  Company Number: US-ALLERGAN-2017865US

PATIENT
  Sex: Female

DRUGS (2)
  1. RISEDRONATE SODIUM 5MG TAB (TBD) [Suspect]
     Active Substance: RISEDRONATE SODIUM
     Indication: BONE DISORDER
     Dosage: UNK
     Route: 065
  2. MYRBETRIQ [Suspect]
     Active Substance: MIRABEGRON
     Indication: PRODUCT USED FOR UNKNOWN INDICATION
     Dosage: 50 MG, QD
     Route: 048
     Dates: start: 2017, end: 20191228

REACTIONS (4)
  - Urinary retention [Unknown]
  - Nephrolithiasis [Recovered/Resolved]
  - Dysuria [Unknown]
  - Blood sodium decreased [Unknown]
